FAERS Safety Report 20876153 (Version 1)
Quarter: 2022Q2

REPORT INFORMATION
  Report Type: Spontaneous
  Country: US (occurrence: US)
  Receive Date: 20220526
  Receipt Date: 20220526
  Transmission Date: 20220721
  Serious: No
  Sender: FDA-Public Use
  Company Number: US-NOVEN PHARMACEUTICALS, INC.-2021-NOV-US004056

PATIENT
  Age: 10 Year
  Sex: Male

DRUGS (1)
  1. DAYTRANA [Suspect]
     Active Substance: METHYLPHENIDATE
     Indication: Attention deficit hyperactivity disorder
     Dosage: 10MG/9HOUR, UNKNOWN
     Route: 062
     Dates: start: 20211206

REACTIONS (6)
  - Application site irritation [Recovered/Resolved]
  - Device difficult to use [Recovered/Resolved]
  - Product adhesion issue [Recovered/Resolved]
  - Device adhesion issue [Recovered/Resolved]
  - Device issue [Recovered/Resolved]
  - Adhesive tape use [Recovered/Resolved]

NARRATIVE: CASE EVENT DATE: 20211206
